FAERS Safety Report 19767040 (Version 2)
Quarter: 2021Q3

REPORT INFORMATION
  Report Type: Spontaneous
  Country: IT (occurrence: IT)
  Receive Date: 20210830
  Receipt Date: 20210928
  Transmission Date: 20211014
  Serious: Yes (Other)
  Sender: FDA-Public Use
  Company Number: IT-ALLERGAN-2130453US

PATIENT
  Sex: Female

DRUGS (5)
  1. CARIPRAZINE HCL ? BP [Suspect]
     Active Substance: CARIPRAZINE HYDROCHLORIDE
     Indication: BIPOLAR DISORDER
     Dates: start: 2019, end: 2021
  2. CARBOLITHIUM [Suspect]
     Active Substance: LITHIUM CARBONATE
     Indication: BIPOLAR DISORDER
     Dosage: UNK
     Dates: start: 2019
  3. ABILIFY MAINTENA [Suspect]
     Active Substance: ARIPIPRAZOLE
     Dosage: UNK
     Route: 030
     Dates: start: 202105
  4. ABILIFY MAINTENA [Suspect]
     Active Substance: ARIPIPRAZOLE
     Indication: PRODUCT USED FOR UNKNOWN INDICATION
     Dosage: UNK
  5. ABILIFY MAINTENA [Suspect]
     Active Substance: ARIPIPRAZOLE
     Indication: PRODUCT USED FOR UNKNOWN INDICATION
     Dosage: UNK
     Route: 030
     Dates: start: 202105

REACTIONS (12)
  - Blood arsenic increased [Unknown]
  - Muscle disorder [Unknown]
  - Sedation [Unknown]
  - Gait disturbance [Not Recovered/Not Resolved]
  - Blood aluminium increased [Unknown]
  - Adverse event [Not Recovered/Not Resolved]
  - Extrapyramidal disorder [Unknown]
  - Obsessive-compulsive disorder [Not Recovered/Not Resolved]
  - Blood mercury abnormal [Unknown]
  - Confusional state [Unknown]
  - Off label use [Unknown]
  - Movement disorder [Unknown]
